FAERS Safety Report 5209029-7 (Version None)
Quarter: 2007Q1

REPORT INFORMATION
  Report Type: 
  Country: None (occurrence: None)
  Receive Date: 20070116
  Receipt Date: 20070108
  Transmission Date: 20070707
  Serious: Yes (Life-Threatening, Hospitalization, Disabling, Other)
  Sender: FDA-Public Use
  Company Number: US-MERCK-0701USA00907

PATIENT
  Age: 64 Year
  Sex: Female

DRUGS (8)
  1. JANUVIA [Suspect]
     Indication: DIABETES MELLITUS NON-INSULIN-DEPENDENT
     Route: 048
     Dates: start: 20061219, end: 20070102
  2. JANUVIA [Suspect]
     Route: 048
     Dates: start: 20070104
  3. METFORMIN HYDROCHLORIDE [Concomitant]
     Route: 048
  4. DIOVAN [Concomitant]
     Route: 048
  5. SYNTHROID [Concomitant]
     Route: 048
  6. CRESTOR [Concomitant]
     Route: 048
  7. ZETIA [Concomitant]
     Route: 048
  8. VALIUM [Concomitant]
     Route: 048

REACTIONS (4)
  - ABDOMINAL DISCOMFORT [None]
  - DYSGRAPHIA [None]
  - SPEECH DISORDER [None]
  - UNRESPONSIVE TO STIMULI [None]
